FAERS Safety Report 4531814-5 (Version None)
Quarter: 2004Q4

REPORT INFORMATION
  Report Type: 
  Country: None (occurrence: None)
  Receive Date: 20041220
  Receipt Date: 20041215
  Transmission Date: 20050328
  Serious: Yes (Hospitalization)
  Sender: FDA-Public Use
  Company Number: IT-MERCK-0412ITA00020

PATIENT
  Age: 67 Year
  Sex: Male

DRUGS (8)
  1. SINGULAIR [Suspect]
     Indication: ASTHMA
     Route: 048
     Dates: start: 20000101, end: 20040527
  2. SPIRONOLACTONE [Concomitant]
     Route: 048
  3. FUROSEMIDE SODIUM [Concomitant]
     Route: 048
  4. PROPAFENONE HYDROCHLORIDE [Concomitant]
     Route: 048
  5. NITROGLYCERIN [Concomitant]
     Route: 061
  6. TICLOPIDINE HYDROCHLORIDE [Concomitant]
     Route: 048
  7. CEFTRIAXONE SODIUM [Concomitant]
     Route: 042
     Dates: start: 20040514, end: 20040522
  8. CLARITHROMYCIN [Concomitant]
     Route: 048
     Dates: start: 20040514, end: 20040522

REACTIONS (3)
  - ALLERGIC GRANULOMATOUS ANGIITIS [None]
  - GLOMERULONEPHRITIS MINIMAL LESION [None]
  - NEPHROTIC SYNDROME [None]
